FAERS Safety Report 22535440 (Version 1)
Quarter: 2023Q2

REPORT INFORMATION
  Report Type: Spontaneous
  Country: GB (occurrence: GB)
  Receive Date: 20230608
  Receipt Date: 20230608
  Transmission Date: 20230722
  Serious: Yes (Other)
  Sender: FDA-Public Use
  Company Number: GB-BAYER-2023A065438

PATIENT
  Age: 68 Year
  Sex: Male

DRUGS (3)
  1. SORAFENIB [Suspect]
     Active Substance: SORAFENIB
     Indication: Hepatocellular carcinoma
     Dosage: 800 MG DAILY
  2. SORAFENIB [Suspect]
     Active Substance: SORAFENIB
     Indication: Hepatocellular carcinoma
     Dosage: 400 MG DAILY
  3. REGORAFENIB [Concomitant]
     Active Substance: REGORAFENIB
     Indication: HIV infection
     Dosage: 160 MG, QD

REACTIONS (6)
  - Hepatocellular carcinoma [None]
  - Diarrhoea [None]
  - Palmar-plantar erythrodysaesthesia syndrome [None]
  - Confusional state [None]
  - Hepatic pain [None]
  - Hepatomegaly [None]
